FAERS Safety Report 26019636 (Version 2)
Quarter: 2025Q4

REPORT INFORMATION
  Report Type: Spontaneous
  Country: US (occurrence: US)
  Receive Date: 20251110
  Receipt Date: 20251222
  Transmission Date: 20260117
  Serious: Yes (Life-Threatening, Other)
  Sender: ADVANZ PHARMA
  Company Number: US-ADVANZ PHARMA-202510009624

PATIENT

DRUGS (1)
  1. TRANYLCYPROMINE SULFATE [Suspect]
     Active Substance: TRANYLCYPROMINE SULFATE
     Indication: Depression
     Dosage: 60 MG, QD (TAKING PARNATE FOR APPROXIMATELY 30 YEARS)
     Route: 065

REACTIONS (4)
  - Near death experience [Unknown]
  - Drug dependence [Unknown]
  - Therapy interrupted [Unknown]
  - Product availability issue [Unknown]
